FAERS Safety Report 5889247-5 (Version None)
Quarter: 2008Q3

REPORT INFORMATION
  Report Type: 
  Country: None (occurrence: None)
  Receive Date: 20080917
  Receipt Date: 20080904
  Transmission Date: 20090109
  Serious: Yes (Hospitalization, Other)
  Sender: FDA-Public Use
  Company Number: 2008US001743

PATIENT
  Age: 47 Year
  Sex: Female
  Weight: 59.6 kg

DRUGS (6)
  1. PROGRAF [Suspect]
     Indication: HEART TRANSPLANT
     Dosage: 3 MG, UID/QD, ORAL
     Route: 048
     Dates: start: 19970101, end: 20080401
  2. CELLCEPT [Concomitant]
  3. CALCIUM + VITAMIN D (COLECALCIFEROL, CALCIUM) [Concomitant]
  4. ZOCOR [Concomitant]
  5. SLO-MAG (MAGNESIUM CHLORIDE ANHYDROUS) [Concomitant]
  6. NEXIUM (ESOMEPRAZOLE SODIUM) [Concomitant]

REACTIONS (20)
  - ABDOMINAL PAIN [None]
  - ATELECTASIS [None]
  - BACTERIAL INFECTION [None]
  - BLOOD ALKALINE PHOSPHATASE INCREASED [None]
  - BRONCHOALVEOLAR LAVAGE ABNORMAL [None]
  - COUGH [None]
  - DEVICE LEAD DAMAGE [None]
  - DEVICE RELATED INFECTION [None]
  - FLATULENCE [None]
  - LEUKOCYTOSIS [None]
  - LOBAR PNEUMONIA [None]
  - MUSCULOSKELETAL CHEST PAIN [None]
  - NEOPLASM [None]
  - OPPORTUNISTIC INFECTION [None]
  - PACEMAKER COMPLICATION [None]
  - PULMONARY CAVITATION [None]
  - PULMONARY EMBOLISM [None]
  - SCAR [None]
  - THROMBOSIS [None]
  - VENTRICULAR HYPOKINESIA [None]
